FAERS Safety Report 5500617-7 (Version None)
Quarter: 2007Q4

REPORT INFORMATION
  Report Type: 
  Country: None (occurrence: None)
  Receive Date: 20071029
  Receipt Date: 20070402
  Transmission Date: 20080405
  Serious: Yes (Life-Threatening)
  Sender: FDA-Public Use
  Company Number: GB-ALLERGAN-0703527US

PATIENT
  Sex: Male

DRUGS (1)
  1. LEVOBUNOLOL HCL UNK [Suspect]
     Indication: GLAUCOMA
     Dosage: UNK, BID
     Route: 047

REACTIONS (4)
  - FALL [None]
  - HEART RATE DECREASED [None]
  - SYNCOPE [None]
  - UNRESPONSIVE TO STIMULI [None]
